FAERS Safety Report 16803880 (Version 1)
Quarter: 2019Q3

REPORT INFORMATION
  Report Type: Spontaneous
  Country: NL (occurrence: NL)
  Receive Date: 20190913
  Receipt Date: 20190913
  Transmission Date: 20191005
  Serious: Yes (Hospitalization)
  Sender: FDA-Public Use
  Company Number: NL-TEVA-2019-NL-1105505

PATIENT
  Age: 68 Year
  Sex: Female
  Weight: 77 kg

DRUGS (10)
  1. BISOPROLOL TABLET 10 MG [Concomitant]
     Dosage: 10 MG ORAL 1 X PER DAY
  2. METOCLOPRAMIDE. [Concomitant]
     Active Substance: METOCLOPRAMIDE
     Dosage: USE 10 MG ORALLY 3 X PER DAY IF NECESSARY FOR NAUSEA
  3. HYDROCHLOORTHIAZIDE [Concomitant]
     Active Substance: HYDROCHLOROTHIAZIDE
  4. OMEPRAZOL 20 MG CAPSULE MSR [Concomitant]
     Dosage: USE 20 MG ORALLY 1 X PER DAY
  5. CAPECITABINE. [Concomitant]
     Active Substance: CAPECITABINE
     Dosage: 1800 MG ORAL 2 X PER DAY
  6. MAGNESIUMHYDROXIDE 724 MG [Concomitant]
     Dosage: USE 724 MG ORALLY 3 X PER DAY IF NECESSARY FOR REFLUX
  7. OXALIPLATINE [Suspect]
     Active Substance: OXALIPLATIN
     Indication: OESOPHAGEAL SQUAMOUS CELL CARCINOMA METASTATIC
     Dosage: 130MG/M2 1X PER 3 WEEKS IN COMBINATION WITH CAPECITABINE
     Dates: start: 20190702
  8. SIMVASTATINE 40 MG TABLET [Concomitant]
     Dosage: USE 40 MG ORALLY 1 X PER DAY
  9. SIMVASTATINE [Concomitant]
     Active Substance: SIMVASTATIN
  10. METCOLPRAMIDE 10 MG ZETPIL [Concomitant]
     Dosage: USE 10 MG RECTAL IF NECESSARY 3 X PER DAY NAUSEA

REACTIONS (6)
  - Oxygen saturation decreased [Recovered/Resolved]
  - Eyelid ptosis [Recovered/Resolved]
  - Presyncope [Recovered/Resolved]
  - Stridor [Recovered/Resolved]
  - Laryngospasm [Recovered/Resolved]
  - Muscular weakness [Recovered/Resolved]

NARRATIVE: CASE EVENT DATE: 20190725
